FAERS Safety Report 19041352 (Version 1)
Quarter: 2021Q1

REPORT INFORMATION
  Report Type: Spontaneous
  Country: US (occurrence: US)
  Receive Date: 20210322
  Receipt Date: 20210322
  Transmission Date: 20210420
  Serious: Yes (Other)
  Sender: FDA-Public Use
  Company Number: US-GLAXOSMITHKLINE-US2021GSK053868

PATIENT
  Sex: Male

DRUGS (8)
  1. ZANTAC [Suspect]
     Active Substance: RANITIDINE HYDROCHLORIDE
     Dosage: 300 MG,OCCASIONAL
     Route: 065
     Dates: start: 199701, end: 202001
  2. ZANTAC [Suspect]
     Active Substance: RANITIDINE HYDROCHLORIDE
     Dosage: 300 MG, OCCASIONAL
     Route: 065
     Dates: start: 199701, end: 202001
  3. RANITIDINE. [Suspect]
     Active Substance: RANITIDINE
     Dosage: 300 MG, OCCASIONAL
     Route: 065
     Dates: start: 199701, end: 202001
  4. RANITIDINE. [Suspect]
     Active Substance: RANITIDINE
     Indication: FOOD ALLERGY
     Dosage: 150 MG OCCASIONAL
     Route: 065
     Dates: start: 199701, end: 202001
  5. RANITIDINE. [Suspect]
     Active Substance: RANITIDINE
     Indication: FOOD ALLERGY
     Dosage: 150 MG OCCASIONAL
     Route: 065
     Dates: start: 199701, end: 202001
  6. ZANTAC [Suspect]
     Active Substance: RANITIDINE HYDROCHLORIDE
     Indication: FOOD ALLERGY
     Dosage: 150 MG OCCASIONAL
     Route: 065
     Dates: start: 199701, end: 202001
  7. ZANTAC [Suspect]
     Active Substance: RANITIDINE HYDROCHLORIDE
     Indication: FOOD ALLERGY
     Dosage: 150 MG ,OCCASIONAL
     Route: 065
     Dates: start: 199701, end: 202001
  8. RANITIDINE. [Suspect]
     Active Substance: RANITIDINE
     Dosage: 300 MG,OCCASIONAL
     Route: 065
     Dates: start: 199701, end: 202001

REACTIONS (1)
  - Renal cancer [Unknown]
